FAERS Safety Report 5128189-X (Version None)
Quarter: 2006Q4

REPORT INFORMATION
  Report Type: 
  Country: None (occurrence: None)
  Receive Date: 20061013
  Receipt Date: 20061013
  Transmission Date: 20070319
  Serious: No
  Sender: FDA-Public Use
  Company Number: None

PATIENT
  Age: 81 Year
  Sex: Male

DRUGS (3)
  1. BACTRIM [Suspect]
     Indication: CELLULITIS
     Dosage: ORAL 160.0 MILLIGRAM
     Route: 048
     Dates: start: 20060804, end: 20060805
  2. INVANZ [Suspect]
     Indication: CELLULITIS
     Dosage: INTRAVENOUS; 500.0
     Route: 042
     Dates: start: 20060806, end: 20060809
  3. FUROSEMIDE [Concomitant]

REACTIONS (1)
  - RENAL FAILURE ACUTE [None]
